FAERS Safety Report 20749901 (Version 1)
Quarter: 2022Q2

REPORT INFORMATION
  Report Type: Report from Study
  Country: US (occurrence: None)
  Receive Date: 20220426
  Receipt Date: 20220426
  Transmission Date: 20220721
  Serious: Yes (Hospitalization, Other)
  Sender: FDA-Public Use
  Company Number: 2022A154707

PATIENT
  Age: 30236 Day
  Sex: Female

DRUGS (1)
  1. TAGRISSO [Suspect]
     Active Substance: OSIMERTINIB
     Indication: Lung carcinoma cell type unspecified stage IV
     Route: 048
     Dates: start: 202204

REACTIONS (4)
  - Asthenia [Unknown]
  - Rectal haemorrhage [Unknown]
  - Ulcer [Unknown]
  - Photophobia [Unknown]

NARRATIVE: CASE EVENT DATE: 20211112
